FAERS Safety Report 6071598-5 (Version None)
Quarter: 2009Q1

REPORT INFORMATION
  Report Type: 
  Country: None (occurrence: None)
  Receive Date: 20090210
  Receipt Date: 20090130
  Transmission Date: 20090719
  Serious: No
  Sender: FDA-Public Use
  Company Number: FR-JNJFOC-20090107475

PATIENT
  Age: 94 Year
  Sex: Male

DRUGS (1)
  1. DURAGESIC-100 [Suspect]
     Indication: ARTHRALGIA
     Dosage: START DATE WAS 29-JAN-2009 OR 30-JAN-2009
     Route: 062

REACTIONS (3)
  - CONSTIPATION [None]
  - MEDICATION ERROR [None]
  - OVERDOSE [None]
